FAERS Safety Report 9096864 (Version 1)
Quarter: 2013Q1

REPORT INFORMATION
  Report Type: Spontaneous
  Country: BR (occurrence: BR)
  Receive Date: 20130211
  Receipt Date: 20130211
  Transmission Date: 20140127
  Serious: Yes (Other)
  Sender: FDA-Public Use
  Company Number: BR-AMGEN-BRASP2013008823

PATIENT
  Age: 79 Year
  Sex: Female
  Weight: 65 kg

DRUGS (7)
  1. ENBREL [Suspect]
     Indication: RHEUMATOID ARTHRITIS
     Dosage: 25 MG, 2X/WEEK
     Route: 058
     Dates: start: 200901, end: 201201
  2. CAPTOPRIL [Concomitant]
     Dosage: 25 MG, 2X/DAY
     Dates: start: 2003
  3. PREDNISONE [Concomitant]
     Dosage: UNK
  4. LORAX                              /00273201/ [Concomitant]
     Indication: RELAXATION THERAPY
     Dosage: 2 MG, 1X/DAY
     Dates: start: 2003
  5. LORAX                              /00273201/ [Concomitant]
     Indication: SLEEP DISORDER
  6. HYDROCHLOROTHIAZIDE [Concomitant]
     Indication: BLOOD PRESSURE
     Dosage: UNK
  7. OMEPRAZOLE [Concomitant]
     Indication: GASTRIC DISORDER
     Dosage: 20 MG, 1X/DAY

REACTIONS (2)
  - Arthropathy [Unknown]
  - Cardiovascular disorder [Unknown]
